FAERS Safety Report 25969143 (Version 1)
Quarter: 2025Q4

REPORT INFORMATION
  Report Type: Report from Study
  Country: GB (occurrence: GB)
  Receive Date: 20251028
  Receipt Date: 20251028
  Transmission Date: 20260117
  Serious: Yes (Other)
  Sender: SAMSUNG BIOEPIS
  Company Number: GB-SAMSUNG BIOEPIS-SB-2025-31104

PATIENT
  Age: 70 Year
  Sex: Female

DRUGS (1)
  1. ETANERCEPT [Suspect]
     Active Substance: ETANERCEPT
     Indication: Rheumatoid arthritis
     Route: 058
     Dates: start: 20230630

REACTIONS (5)
  - Pneumonia [Unknown]
  - Pulmonary oedema [Unknown]
  - Tooth abscess [Unknown]
  - Viral infection [Unknown]
  - Urinary tract infection [Unknown]
